FAERS Safety Report 4781026-5 (Version None)
Quarter: 2005Q3

REPORT INFORMATION
  Report Type: 
  Country: None (occurrence: None)
  Receive Date: 20050928
  Receipt Date: 20050920
  Transmission Date: 20060218
  Serious: Yes (Other)
  Sender: FDA-Public Use
  Company Number: GB-JNJFOC-20050905553

PATIENT
  Age: 57 Year
  Sex: Male

DRUGS (2)
  1. RISPERDAL [Suspect]
     Indication: SCHIZOPHRENIA
     Route: 048
  2. ZAPONEX [Suspect]
     Indication: SCHIZOPHRENIA
     Route: 048

REACTIONS (1)
  - NEUTROPHIL COUNT DECREASED [None]
